FAERS Safety Report 9641345 (Version 1)
Quarter: 2013Q4

REPORT INFORMATION
  Report Type: Spontaneous
  Country: US (occurrence: None)
  Receive Date: 20131022
  Receipt Date: 20131022
  Transmission Date: 20140711
  Serious: No
  Sender: FDA-Public Use
  Company Number: None

PATIENT
  Age: 52 Year
  Sex: Male
  Weight: 62.6 kg

DRUGS (5)
  1. ATRIPLA [Suspect]
     Indication: HIV INFECTION
     Dosage: T TABLET
     Route: 048
     Dates: start: 20100901, end: 20130913
  2. FENOFIBRATE [Concomitant]
  3. CRESTOR [Concomitant]
  4. ACYCLOVIR [Concomitant]
  5. ASPIRIN [Concomitant]

REACTIONS (2)
  - Renal failure acute [None]
  - Renal tubular acidosis [None]
